FAERS Safety Report 16029564 (Version 1)
Quarter: 2019Q1

REPORT INFORMATION
  Report Type: Spontaneous
  Country: US (occurrence: US)
  Receive Date: 20190304
  Receipt Date: 20190304
  Transmission Date: 20190418
  Serious: No
  Sender: FDA-Public Use
  Company Number: US-IMPAX LABORATORIES, LLC-2018-IPXL-01629

PATIENT
  Age: 68 Year
  Sex: Female
  Weight: 54 kg

DRUGS (5)
  1. RYTARY [Suspect]
     Active Substance: CARBIDOPA\LEVODOPA
     Dosage: 36.25/145 MG, 2 CAPSULES (TAKING EACH CAPSULE 1-2 HOURS LATER) BID
     Route: 048
     Dates: start: 201806
  2. RYTARY [Suspect]
     Active Substance: CARBIDOPA\LEVODOPA
     Indication: PARKINSON^S DISEASE
     Dosage: 36.25/145 MG, 2 CAPSULES, BID
     Route: 048
     Dates: start: 201804
  3. RYTARY [Suspect]
     Active Substance: CARBIDOPA\LEVODOPA
     Dosage: 36.25/145 MG, 2 CAPSULES AT 8:45 PM AND 1 CAPSUKE AT 5 PM
     Route: 048
     Dates: start: 20180612, end: 20180612
  4. SERTRALINE [Concomitant]
     Active Substance: SERTRALINE HYDROCHLORIDE
     Indication: ANXIETY
     Dosage: UNK
     Route: 065
  5. MIRAPEX [Concomitant]
     Active Substance: PRAMIPEXOLE DIHYDROCHLORIDE
     Indication: PARKINSON^S DISEASE
     Dosage: UNK
     Route: 065

REACTIONS (7)
  - Anxiety [Recovering/Resolving]
  - Treatment noncompliance [Unknown]
  - Feeling abnormal [Unknown]
  - Dyskinesia [Not Recovered/Not Resolved]
  - Dizziness [Unknown]
  - Disorientation [Unknown]
  - Gait disturbance [Unknown]

NARRATIVE: CASE EVENT DATE: 201804
